FAERS Safety Report 9674884 (Version 4)
Quarter: 2014Q3

REPORT INFORMATION
  Report Type: Report from Study
  Country: AR (occurrence: AR)
  Receive Date: 20131107
  Receipt Date: 20140923
  Transmission Date: 20150326
  Serious: Yes (Other)
  Sender: FDA-Public Use
  Company Number: PHHY2013AR126101

PATIENT
  Age: 83 Year
  Sex: Female

DRUGS (2)
  1. ACLASTA [Suspect]
     Active Substance: ZOLEDRONIC ACID
     Dosage: UNK (ANUALLY)
     Route: 042
     Dates: start: 2007, end: 2007
  2. ACLASTA [Suspect]
     Active Substance: ZOLEDRONIC ACID
     Indication: OSTEOPOROSIS
     Dosage: UNK (ANUALLY)
     Route: 042
     Dates: start: 2003

REACTIONS (6)
  - Maculopathy [Not Recovered/Not Resolved]
  - Feeling abnormal [Unknown]
  - Heart rate decreased [Recovering/Resolving]
  - Arrhythmia [Recovering/Resolving]
  - Visual impairment [Unknown]
  - Osteopenia [Recovered/Resolved]

NARRATIVE: CASE EVENT DATE: 2010
